FAERS Safety Report 11999058 (Version 3)
Quarter: 2016Q1

REPORT INFORMATION
  Report Type: Spontaneous
  Country: US (occurrence: US)
  Receive Date: 20160204
  Receipt Date: 20160314
  Transmission Date: 20160526
  Serious: Yes (Hospitalization, Other)
  Sender: FDA-Public Use
  Company Number: US-ALEXION PHARMACEUTICALS INC-A201600551

PATIENT
  Sex: Female

DRUGS (4)
  1. BENADRYL [Concomitant]
     Active Substance: DIPHENHYDRAMINE HYDROCHLORIDE
     Indication: PREMEDICATION
     Dosage: 25 MG, UNK
     Route: 065
  2. PEPCID [Concomitant]
     Active Substance: FAMOTIDINE
     Indication: PREMEDICATION
     Dosage: 20 MG, UNK
     Route: 065
  3. DECADRON [Concomitant]
     Active Substance: DEXAMETHASONE
     Indication: PREMEDICATION
     Dosage: 4 MG, UNK
     Route: 065
  4. SOLIRIS [Suspect]
     Active Substance: ECULIZUMAB
     Indication: HAEMOLYTIC URAEMIC SYNDROME
     Dosage: UNK
     Route: 042
     Dates: start: 20160123

REACTIONS (15)
  - Dyspnoea [Unknown]
  - Oedema [Unknown]
  - Dysarthria [Unknown]
  - Nuclear magnetic resonance imaging brain abnormal [Unknown]
  - Incoherent [Unknown]
  - Psychotic disorder [Unknown]
  - Psychotic disorder [Unknown]
  - Incontinence [Unknown]
  - Blood urine present [Unknown]
  - Disorientation [Unknown]
  - Abasia [Unknown]
  - Inappropriate schedule of drug administration [Unknown]
  - Memory impairment [Unknown]
  - Blood pressure increased [Unknown]
  - Seizure [Unknown]

NARRATIVE: CASE EVENT DATE: 201602
